FAERS Safety Report 16447199 (Version 1)
Quarter: 2019Q2

REPORT INFORMATION
  Report Type: Spontaneous
  Country: US (occurrence: US)
  Receive Date: 20190618
  Receipt Date: 20190618
  Transmission Date: 20190711
  Serious: No
  Sender: FDA-Public Use
  Company Number: US-TAKEDA-2019TUS037035

PATIENT
  Age: 57 Year
  Sex: Female
  Weight: 65.76 kg

DRUGS (5)
  1. DEXILANT [Suspect]
     Active Substance: DEXLANSOPRAZOLE
     Indication: GASTROOESOPHAGEAL REFLUX DISEASE
     Dosage: 60 MILLIGRAM, BID
     Route: 065
     Dates: start: 2015
  2. DEXILANT [Suspect]
     Active Substance: DEXLANSOPRAZOLE
     Indication: GASTRITIS
  3. DEXILANT [Suspect]
     Active Substance: DEXLANSOPRAZOLE
     Indication: DUODENITIS
  4. DEXILANT [Suspect]
     Active Substance: DEXLANSOPRAZOLE
     Indication: OESOPHAGEAL SPASM
  5. DEXILANT [Suspect]
     Active Substance: DEXLANSOPRAZOLE
     Indication: EOSINOPHILIC OESOPHAGITIS

REACTIONS (2)
  - Therapeutic product effect decreased [Recovering/Resolving]
  - Overdose [Unknown]

NARRATIVE: CASE EVENT DATE: 2015
